FAERS Safety Report 21519282 (Version 1)
Quarter: 2022Q4

REPORT INFORMATION
  Report Type: Spontaneous
  Country: JP (occurrence: JP)
  Receive Date: 20221028
  Receipt Date: 20221028
  Transmission Date: 20230113
  Serious: Yes (Death, Hospitalization)
  Sender: FDA-Public Use
  Company Number: JP-MYE-2022M1117340AA

PATIENT
  Age: 6 Year
  Sex: Male

DRUGS (6)
  1. ACETAMINOPHEN [Suspect]
     Active Substance: ACETAMINOPHEN
     Indication: Mycoplasma infection
     Dosage: UNK
     Route: 065
  2. PREDNISOLONE [Suspect]
     Active Substance: PREDNISOLONE
     Indication: Stevens-Johnson syndrome
     Dosage: 2 MILLIGRAM/KILOGRAM, QD
     Route: 065
  3. CYCLOSPORINE [Suspect]
     Active Substance: CYCLOSPORINE
     Indication: Acute respiratory distress syndrome
     Dosage: 3 MILLIGRAM/KILOGRAM, QD
     Route: 065
  4. CLARITHROMYCIN [Concomitant]
     Active Substance: CLARITHROMYCIN
     Indication: Mycoplasma infection
     Dosage: UNK
     Route: 065
  5. PRIVIGEN [Concomitant]
     Active Substance: HUMAN IMMUNOGLOBULIN G
     Indication: Stevens-Johnson syndrome
     Dosage: 0.5 GRAM PER KILOGRAM, QD
     Route: 065
  6. METHYLPREDNISOLONE [Concomitant]
     Active Substance: METHYLPREDNISOLONE
     Indication: Stevens-Johnson syndrome
     Dosage: 1 GRAM,THREE DAYS A WEEK
     Route: 065

REACTIONS (9)
  - Stevens-Johnson syndrome [Fatal]
  - Acute respiratory distress syndrome [Fatal]
  - Respiratory failure [Fatal]
  - Pneumomediastinum [Fatal]
  - Subcutaneous emphysema [Fatal]
  - Traumatic haemothorax [Fatal]
  - Diffuse alveolar damage [Fatal]
  - Drug ineffective [Unknown]
  - Off label use [Unknown]
